FAERS Safety Report 16415877 (Version 2)
Quarter: 2019Q3

REPORT INFORMATION
  Report Type: Spontaneous
  Country: US (occurrence: US)
  Receive Date: 20190611
  Receipt Date: 20190715
  Transmission Date: 20191004
  Serious: No
  Sender: FDA-Public Use
  Company Number: US-SA-2019SA157118

PATIENT
  Age: 19 Year
  Sex: Female

DRUGS (2)
  1. DUPIXENT [Suspect]
     Active Substance: DUPILUMAB
     Indication: DERMATITIS ALLERGIC
     Dosage: 600 MG, 1X
     Route: 058
     Dates: start: 20190415
  2. DUPIXENT [Suspect]
     Active Substance: DUPILUMAB
     Dosage: 300 MG, QOW
     Route: 058
     Dates: start: 20190513

REACTIONS (4)
  - Injection site rash [Unknown]
  - Injection site pain [Unknown]
  - Injection site erythema [Unknown]
  - Injection site exfoliation [Unknown]

NARRATIVE: CASE EVENT DATE: 20190520
